FAERS Safety Report 6655773-4 (Version None)
Quarter: 2010Q1

REPORT INFORMATION
  Report Type: 
  Country: None (occurrence: None)
  Receive Date: 20100317
  Receipt Date: 20091231
  Transmission Date: 20100710
  Serious: No
  Sender: FDA-Public Use
  Company Number: DSA_42280_2010

PATIENT
  Sex: Male

DRUGS (5)
  1. XENAZINE [Suspect]
     Indication: HUNTINGTON'S CHOREA
     Dosage: 12.5 MG BID ORAL
     Route: 048
     Dates: start: 20090728
  2. ORPHENADRINE CITRATE [Concomitant]
  3. TRAMADOL HCL [Concomitant]
  4. MUCINEX [Concomitant]
  5. MULTI-VITAMIN [Concomitant]

REACTIONS (2)
  - DRUG INEFFECTIVE [None]
  - PRODUCT QUALITY ISSUE [None]
